FAERS Safety Report 20805917 (Version 2)
Quarter: 2022Q3

REPORT INFORMATION
  Report Type: Spontaneous
  Country: US (occurrence: US)
  Receive Date: 20220510
  Receipt Date: 20220805
  Transmission Date: 20221027
  Serious: No
  Sender: FDA-Public Use
  Company Number: US-ALLERGAN-2205384US

PATIENT
  Sex: Female
  Weight: 95.25 kg

DRUGS (2)
  1. VUITY [Suspect]
     Active Substance: PILOCARPINE HYDROCHLORIDE
     Indication: Presbyopia
     Dosage: UNK
     Dates: start: 20220114, end: 20220122
  2. ELETRIPTAN [Concomitant]
     Active Substance: ELETRIPTAN
     Dosage: UNK, PRN

REACTIONS (5)
  - Disorientation [Recovered/Resolved]
  - Visual impairment [Recovered/Resolved]
  - Headache [Recovered/Resolved]
  - Eye irritation [Recovered/Resolved]
  - Drug ineffective [Unknown]
